FAERS Safety Report 6784204-9 (Version None)
Quarter: 2010Q2

REPORT INFORMATION
  Report Type: 
  Country: None (occurrence: None)
  Receive Date: 20100622
  Receipt Date: 20100608
  Transmission Date: 20101027
  Serious: Yes (Other)
  Sender: FDA-Public Use
  Company Number: US-ELI_LILLY_AND_COMPANY-US201006002945

PATIENT
  Age: 71 Year
  Sex: Female

DRUGS (7)
  1. ZYPREXA [Suspect]
     Indication: OBSESSIVE-COMPULSIVE PERSONALITY DISORDER
     Dosage: 2.5 MG, DAILY (1/D)
     Route: 065
     Dates: start: 20050101
  2. ZYPREXA [Suspect]
     Dosage: 2.5 MG, 3/W
     Route: 065
     Dates: start: 20100501
  3. ZYPREXA [Suspect]
     Dosage: 2.5 MG, 2/W
     Route: 065
  4. PAXIL [Concomitant]
  5. XANAX [Concomitant]
  6. ZOCOR [Concomitant]
  7. HYDROCHLOROTHIAZIDE [Concomitant]

REACTIONS (3)
  - DRUG WITHDRAWAL SYNDROME [None]
  - HOMICIDAL IDEATION [None]
  - OFF LABEL USE [None]
